FAERS Safety Report 12552343 (Version 3)
Quarter: 2016Q3

REPORT INFORMATION
  Report Type: Spontaneous
  Country: JP (occurrence: JP)
  Receive Date: 20160713
  Receipt Date: 20160805
  Transmission Date: 20161109
  Serious: Yes (Hospitalization, Other)
  Sender: FDA-Public Use
  Company Number: JP-GLAXOSMITHKLINE-JP2016JPN096024

PATIENT
  Age: 62 Year
  Sex: Male
  Weight: 64 kg

DRUGS (13)
  1. ZANTAC [Concomitant]
     Active Substance: RANITIDINE HYDROCHLORIDE
     Dosage: 75 MG, BID
     Route: 048
  2. MANICALOT [Concomitant]
     Active Substance: MANIDIPINE HYDROCHLORIDE
     Dosage: 10 MG, QD
     Route: 048
  3. FUROSEMIDE. [Concomitant]
     Active Substance: FUROSEMIDE
     Dosage: 40 MG, BID
     Route: 048
  4. ARTIST [Concomitant]
     Active Substance: CARVEDILOL
     Dosage: 2.5 MG, TID
     Route: 048
  5. LEVOFLOXACIN HEMIHYDRATE [Concomitant]
     Active Substance: LEVOFLOXACIN
  6. RENIVACE [Concomitant]
     Active Substance: ENALAPRIL
     Dosage: 5 MG, QD
     Route: 048
  7. VALTREX [Suspect]
     Active Substance: VALACYCLOVIR HYDROCHLORIDE
     Indication: HERPES ZOSTER
     Dosage: 500 MG, QD
     Route: 048
     Dates: start: 20160630, end: 20160704
  8. ZYLORIC [Concomitant]
     Active Substance: ALLOPURINOL
     Dosage: 100 MG, QD
     Route: 048
  9. FOSRENOL [Concomitant]
     Active Substance: LANTHANUM CARBONATE
     Dosage: 250 MG, TID
     Route: 048
  10. DERMOVATE [Concomitant]
     Active Substance: CLOBETASOL
     Route: 003
  11. RENAGEL [Concomitant]
     Active Substance: SEVELAMER HYDROCHLORIDE
     Dosage: 250 MG, TID
     Route: 048
  12. ALFACALCIDOL [Concomitant]
     Active Substance: ALFACALCIDOL
     Dosage: 0.5 ?G, QD
     Route: 048
  13. BAYASPIRIN [Concomitant]
     Active Substance: ASPIRIN
     Dosage: 100 MG, QD
     Route: 048

REACTIONS (7)
  - Dysarthria [Unknown]
  - Altered state of consciousness [Recovering/Resolving]
  - Psychiatric symptom [Recovered/Resolved]
  - Abnormal behaviour [Unknown]
  - Memory impairment [Recovered/Resolved]
  - Euphoric mood [Unknown]
  - Agitation [Unknown]

NARRATIVE: CASE EVENT DATE: 20160702
